FAERS Safety Report 9454562 (Version 1)
Quarter: 2013Q3

REPORT INFORMATION
  Report Type: Spontaneous
  Country: US (occurrence: None)
  Receive Date: 20130808
  Receipt Date: 20130808
  Transmission Date: 20140515
  Serious: No
  Sender: FDA-Public Use
  Company Number: CS130306023

PATIENT
  Age: 97 Year
  Sex: Female

DRUGS (2)
  1. PRAMOSONE [Suspect]
     Indication: BURNING SENSATION
     Dosage: SHOULERS, NECK ARMS, BUTTOCKS
  2. PRAMOSONE [Suspect]
     Indication: PRURITUS
     Dosage: SHOULERS, NECK ARMS, BUTTOCKS

REACTIONS (4)
  - Burning sensation [None]
  - Burning sensation [None]
  - Condition aggravated [None]
  - Pruritus [None]
